FAERS Safety Report 10032281 (Version 1)
Quarter: 2014Q1

REPORT INFORMATION
  Report Type: Spontaneous
  Country: GB (occurrence: GB)
  Receive Date: 20140324
  Receipt Date: 20140324
  Transmission Date: 20141002
  Serious: Yes (Hospitalization)
  Sender: FDA-Public Use
  Company Number: GB-EISAI INC-E2007-01581-SPO-GB

PATIENT
  Age: 39 Year
  Sex: Female
  Weight: 69.7 kg

DRUGS (3)
  1. FYCOMPA (PERAMPANEL) [Suspect]
     Indication: PRODUCT USED FOR UNKNOWN INDICATION
     Route: 048
     Dates: start: 201306, end: 201309
  2. CLOBAZAM [Concomitant]
     Indication: PRODUCT USED FOR UNKNOWN INDICATION
     Dosage: UNKNOWN
  3. KEPPRA [Concomitant]
     Indication: PRODUCT USED FOR UNKNOWN INDICATION
     Dosage: UNKNOWN

REACTIONS (5)
  - Chest pain [Unknown]
  - Depressed mood [Unknown]
  - Musculoskeletal pain [Unknown]
  - Intentional self-injury [Unknown]
  - Suicidal ideation [Unknown]
